FAERS Safety Report 23247336 (Version 5)
Quarter: 2024Q4

REPORT INFORMATION
  Report Type: Spontaneous
  Country: JP (occurrence: JP)
  Receive Date: 20231130
  Receipt Date: 20241205
  Transmission Date: 20250115
  Serious: Yes (Hospitalization, Other)
  Sender: MERCK
  Company Number: JP-MSD-M2023-50248

PATIENT
  Age: 57 Year
  Sex: Male

DRUGS (6)
  1. KEYTRUDA [Suspect]
     Active Substance: PEMBROLIZUMAB
     Indication: Laryngeal cancer stage III
     Dosage: 200 MILLIGRAM, Q3W
     Route: 041
     Dates: start: 20200805
  2. KEYTRUDA [Suspect]
     Active Substance: PEMBROLIZUMAB
     Indication: PD-L1 positive cancer
  3. FLUOROURACIL [Suspect]
     Active Substance: FLUOROURACIL
     Indication: Laryngeal cancer stage III
     Dosage: UNK
     Route: 065
     Dates: start: 20200805
  4. FLUOROURACIL [Suspect]
     Active Substance: FLUOROURACIL
     Indication: PD-L1 positive cancer
  5. CISPLATIN [Suspect]
     Active Substance: CISPLATIN
     Indication: Laryngeal cancer stage III
     Dosage: UNK
     Route: 065
     Dates: start: 20200805
  6. CISPLATIN [Suspect]
     Active Substance: CISPLATIN
     Indication: PD-L1 positive cancer

REACTIONS (6)
  - Deep vein thrombosis [Unknown]
  - Malignant neoplasm progression [Unknown]
  - Pulmonary embolism [Unknown]
  - Immune-mediated lung disease [Recovered/Resolved]
  - Organising pneumonia [Recovering/Resolving]
  - Organising pneumonia [Unknown]

NARRATIVE: CASE EVENT DATE: 20201021
